FAERS Safety Report 4375402-2 (Version None)
Quarter: 2004Q2

REPORT INFORMATION
  Report Type: 
  Country: None (occurrence: None)
  Receive Date: 20040602
  Receipt Date: 20040517
  Transmission Date: 20050107
  Serious: Yes (Death)
  Sender: FDA-Public Use
  Company Number: 235451

PATIENT
  Age: 36 Year
  Sex: Male

DRUGS (5)
  1. NOVOSEVEN [Suspect]
     Indication: TRAUMATIC HAEMORRHAGE
     Dosage: 120 UG/KG, SINGLE, INTRAVENOUS
     Route: 042
     Dates: start: 20030801
  2. RED BLOOD CELLS [Concomitant]
  3. PLASMA [Concomitant]
  4. PLATELETS [Concomitant]
  5. CRYOPRECIPITATED AHF [Concomitant]

REACTIONS (4)
  - CEREBRAL INFARCTION [None]
  - CEREBRAL ISCHAEMIA [None]
  - CEREBROVASCULAR ACCIDENT [None]
  - INTRACRANIAL INJURY [None]
